FAERS Safety Report 7266999-3 (Version None)
Quarter: 2011Q1

REPORT INFORMATION
  Report Type: 
  Country: None (occurrence: None)
  Receive Date: 20110201
  Receipt Date: 20110121
  Transmission Date: 20110831
  Serious: Yes (Hospitalization, Other)
  Sender: FDA-Public Use
  Company Number: CA-JNJFOC-20101204670

PATIENT
  Age: 67 Year
  Sex: Female
  Weight: 57.1 kg

DRUGS (1)
  1. REMICADE [Suspect]
     Indication: RHEUMATOID ARTHRITIS
     Route: 042

REACTIONS (7)
  - DYSPEPSIA [None]
  - DEPRESSION [None]
  - URINARY TRACT INFECTION [None]
  - VARICELLA [None]
  - NAUSEA [None]
  - HEADACHE [None]
  - SKIN BURNING SENSATION [None]
